FAERS Safety Report 8080629-2 (Version None)
Quarter: 2012Q1

REPORT INFORMATION
  Report Type: 
  Country: None (occurrence: None)
  Receive Date: 20120130
  Receipt Date: 20120123
  Transmission Date: 20120608
  Serious: Yes (Hospitalization)
  Sender: FDA-Public Use
  Company Number: US-TEVA-319488USA

PATIENT
  Age: 18 Year
  Sex: Female

DRUGS (4)
  1. INDOMETHACIN [Concomitant]
     Indication: PAIN
     Dosage: 25MG NIGHTLY, AS NEEDED
     Route: 048
  2. DROSPIRENONE AND ETHINYL ESTRADIOL [Suspect]
     Indication: MENSTRUATION IRREGULAR
     Dosage: ETHINYLESTRADIOL 30MICROG/DROSPIRENONE 3MG
     Route: 048
  3. LANSOPRAZOLE [Concomitant]
     Indication: GASTROOESOPHAGEAL REFLUX DISEASE
     Dosage: 30MG DAILY
     Route: 048
  4. SERTRALINE HYDROCHLORIDE [Concomitant]
     Indication: DEPRESSION
     Dosage: 50MG DAILY
     Route: 048

REACTIONS (3)
  - ABDOMINAL PAIN [None]
  - COLITIS ISCHAEMIC [None]
  - HAEMATOCHEZIA [None]
